FAERS Safety Report 16707853 (Version 2)
Quarter: 2019Q3

REPORT INFORMATION
  Report Type: Spontaneous
  Country: US (occurrence: US)
  Receive Date: 20190815
  Receipt Date: 20190903
  Transmission Date: 20191004
  Serious: Yes (Other)
  Sender: FDA-Public Use
  Company Number: PHEH2019US033425

PATIENT
  Sex: Female

DRUGS (1)
  1. AFINITOR [Suspect]
     Active Substance: EVEROLIMUS
     Indication: BREAST CANCER FEMALE
     Dosage: 10 MG, QD
     Route: 048
     Dates: start: 20190424, end: 201908

REACTIONS (15)
  - Metastases to lung [Unknown]
  - Metastases to bone [Unknown]
  - Hyperglycaemia [Unknown]
  - Malignant neoplasm progression [Unknown]
  - Metastases to liver [Unknown]
  - Haemoglobin decreased [Unknown]
  - Stiff leg syndrome [Unknown]
  - Rash [Recovered/Resolved]
  - Haematocrit decreased [Unknown]
  - Pruritus [Unknown]
  - Sensitive skin [Unknown]
  - Diabetes mellitus [Unknown]
  - Breast cancer female [Unknown]
  - Mean cell volume decreased [Unknown]
  - Osteoarthritis [Unknown]
